FAERS Safety Report 12459111 (Version 2)
Quarter: 2016Q3

REPORT INFORMATION
  Report Type: Spontaneous
  Country: US (occurrence: US)
  Receive Date: 20160613
  Receipt Date: 20160711
  Transmission Date: 20161109
  Serious: Yes (Hospitalization)
  Sender: FDA-Public Use
  Company Number: US-VERTEX PHARMACEUTICALS-2016-003624

PATIENT
  Sex: Female

DRUGS (2)
  1. ORKAMBI [Suspect]
     Active Substance: IVACAFTOR\LUMACAFTOR
     Indication: CYSTIC FIBROSIS
     Dosage: 400-250 MG, BID
     Route: 048
     Dates: start: 20151002
  2. AMIKACIN [Concomitant]
     Active Substance: AMIKACIN
     Indication: CYSTIC FIBROSIS
     Route: 055

REACTIONS (4)
  - Cough [Recovering/Resolving]
  - Pulmonary function test decreased [Unknown]
  - Pseudomonas test positive [Unknown]
  - Fatigue [Unknown]
